FAERS Safety Report 20255328 (Version 1)
Quarter: 2021Q4

REPORT INFORMATION
  Report Type: Spontaneous
  Country: US (occurrence: US)
  Receive Date: 20211230
  Receipt Date: 20211230
  Transmission Date: 20220303
  Serious: Yes (Other)
  Sender: FDA-Public Use
  Company Number: US-NOVARTISPH-NVSC2021US291906

PATIENT
  Age: 5 Year
  Sex: Female

DRUGS (4)
  1. CARBOPLATIN [Suspect]
     Active Substance: CARBOPLATIN
     Indication: Optic pathway injury
     Dosage: UNK
     Route: 065
     Dates: start: 201703, end: 201812
  2. CARBOPLATIN [Suspect]
     Active Substance: CARBOPLATIN
     Indication: Glioma
  3. VINCRISTINE [Suspect]
     Active Substance: VINCRISTINE
     Indication: Optic pathway injury
     Dosage: UNK
     Route: 065
     Dates: start: 201703, end: 201812
  4. VINCRISTINE [Suspect]
     Active Substance: VINCRISTINE
     Indication: Glioma

REACTIONS (2)
  - Neoplasm progression [Unknown]
  - Disease recurrence [Unknown]

NARRATIVE: CASE EVENT DATE: 20211202
